FAERS Safety Report 8100765-1 (Version None)
Quarter: 2012Q1

REPORT INFORMATION
  Report Type: 
  Country: None (occurrence: None)
  Receive Date: 20120129
  Receipt Date: 20110928
  Transmission Date: 20120608
  Serious: No
  Sender: FDA-Public Use
  Company Number: US-ABBOTT-11P-163-0859007-00

PATIENT
  Age: 47 Year
  Sex: Female

DRUGS (3)
  1. RESTORIL [Concomitant]
     Indication: INSOMNIA
     Dosage: PRN
     Route: 048
  2. HUMIRA [Suspect]
     Indication: CROHN'S DISEASE
     Dates: start: 20090901
  3. XANAX [Concomitant]
     Indication: ANXIETY
     Dosage: PRN
     Route: 048

REACTIONS (4)
  - NASOPHARYNGITIS [None]
  - MUSCLE TIGHTNESS [None]
  - PAIN IN EXTREMITY [None]
  - CARPAL TUNNEL SYNDROME [None]
